FAERS Safety Report 8259537-X (Version None)
Quarter: 2012Q2

REPORT INFORMATION
  Report Type: 
  Country: None (occurrence: None)
  Receive Date: 20120404
  Receipt Date: 20120326
  Transmission Date: 20120825
  Serious: Yes (Disabling)
  Sender: FDA-Public Use
  Company Number: US-MERCK-1203USA03472

PATIENT
  Age: 56 Year
  Sex: Female

DRUGS (3)
  1. FOSAMAX [Suspect]
     Route: 048
     Dates: start: 19980101, end: 20010501
  2. ALENDRONATE SODIUM [Suspect]
     Route: 048
     Dates: start: 20080101, end: 20100401
  3. FOSAMAX [Suspect]
     Route: 048
     Dates: start: 20020901, end: 20080101

REACTIONS (4)
  - LOWER LIMB FRACTURE [None]
  - OSTEOPOROSIS [None]
  - FEMUR FRACTURE [None]
  - LOW TURNOVER OSTEOPATHY [None]
